FAERS Safety Report 16048231 (Version 1)
Quarter: 2019Q1

REPORT INFORMATION
  Report Type: Spontaneous
  Country: US (occurrence: US)
  Receive Date: 20190307
  Receipt Date: 20190307
  Transmission Date: 20190418
  Serious: No
  Sender: FDA-Public Use
  Company Number: US-BAUSCH-BL-2019-006432

PATIENT
  Age: 65 Year
  Sex: Male

DRUGS (2)
  1. XIFAXAN [Suspect]
     Active Substance: RIFAXIMIN
     Indication: HEPATIC ENCEPHALOPATHY
     Dosage: ONE TABLET TWICE DAILY
     Route: 048
     Dates: start: 201811, end: 20190225
  2. XIFAXAN [Suspect]
     Active Substance: RIFAXIMIN
     Dosage: ACCIDENTALLY TOOK 2 TABLETS AT ONCE
     Route: 048
     Dates: start: 20190226

REACTIONS (3)
  - Vomiting [Recovered/Resolved]
  - Extra dose administered [Unknown]
  - Nausea [Recovered/Resolved]

NARRATIVE: CASE EVENT DATE: 20190226
